FAERS Safety Report 5335336-3 (Version None)
Quarter: 2007Q2

REPORT INFORMATION
  Report Type: 
  Country: None (occurrence: None)
  Receive Date: 20070525
  Receipt Date: 20070514
  Transmission Date: 20071010
  Serious: Yes (Other)
  Sender: FDA-Public Use
  Company Number: JP-PFIZER INC-2007039396

PATIENT
  Age: 30 Year
  Sex: Male

DRUGS (2)
  1. GABAPEN [Suspect]
     Indication: EPILEPSY
     Dosage: DAILY DOSE:1200MG-FREQ:DAILY
     Route: 048
     Dates: start: 20070501, end: 20070501
  2. CARBAMAZEPINE [Concomitant]
     Route: 048

REACTIONS (1)
  - CONVULSION [None]
